FAERS Safety Report 14484939 (Version 2)
Quarter: 2019Q1

REPORT INFORMATION
  Report Type: Spontaneous
  Country: US (occurrence: US)
  Receive Date: 20180205
  Receipt Date: 20190114
  Transmission Date: 20190417
  Serious: Yes (Death, Other)
  Sender: FDA-Public Use
  Company Number: US-JNJFOC-20180119062

PATIENT
  Sex: Male

DRUGS (3)
  1. CASODEX [Concomitant]
     Active Substance: BICALUTAMIDE
     Indication: PROSTATE CANCER
     Dosage: X 1 MONTH
     Route: 065
     Dates: start: 20161018
  2. ZYTIGA [Suspect]
     Active Substance: ABIRATERONE ACETATE
     Indication: PROSTATE CANCER
     Route: 048
  3. LUPRON [Concomitant]
     Active Substance: LEUPROLIDE ACETATE
     Indication: PROSTATE CANCER
     Route: 065
     Dates: start: 20161024

REACTIONS (6)
  - Blood lactate dehydrogenase increased [Unknown]
  - Anaemia of malignant disease [Unknown]
  - Prostatic specific antigen increased [Unknown]
  - Hyperbilirubinaemia [Unknown]
  - Death [Fatal]
  - Transaminases increased [Unknown]
